FAERS Safety Report 5866138-7 (Version None)
Quarter: 2008Q3

REPORT INFORMATION
  Report Type: 
  Country: None (occurrence: None)
  Receive Date: 20080829
  Receipt Date: 20080819
  Transmission Date: 20090109
  Serious: Yes (Hospitalization)
  Sender: FDA-Public Use
  Company Number: BE-PFIZER INC-2008069456

PATIENT
  Sex: Female

DRUGS (5)
  1. MEDROL [Suspect]
     Dosage: TEXT:32MG, 16MG
     Route: 048
  2. MEDROL [Suspect]
     Dosage: TEXT:TDD:16MG
     Route: 048
  3. DEPAKENE [Concomitant]
  4. KEPPRA [Concomitant]
  5. GLICLAZIDE [Concomitant]

REACTIONS (2)
  - DIABETIC COMA [None]
  - PANCREATITIS [None]
